FAERS Safety Report 5587922-3 (Version None)
Quarter: 2008Q1

REPORT INFORMATION
  Report Type: 
  Country: None (occurrence: None)
  Receive Date: 20080111
  Receipt Date: 20070207
  Transmission Date: 20080703
  Serious: No
  Sender: FDA-Public Use
  Company Number: US-KINGPHARMUSA00001-K200700152

PATIENT

DRUGS (2)
  1. CORGARD [Suspect]
     Indication: MIGRAINE
     Dosage: 10 MG, QD
     Route: 048
     Dates: start: 20060801
  2. NORTRIPTYLINE [Concomitant]
     Dosage: 20 MG, QD
     Route: 048
     Dates: start: 20060801

REACTIONS (1)
  - COUGH [None]
